FAERS Safety Report 7658237-4 (Version None)
Quarter: 2011Q3

REPORT INFORMATION
  Report Type: 
  Country: None (occurrence: None)
  Receive Date: 20110805
  Receipt Date: 20110801
  Transmission Date: 20111222
  Serious: Yes (Hospitalization)
  Sender: FDA-Public Use
  Company Number: US-TEVA-265164USA

PATIENT
  Sex: Female

DRUGS (4)
  1. SIMVASTATIN [Concomitant]
  2. PROPOXYPHENE NAPSYLATE AND ACETAMINOPHEN [Suspect]
     Indication: ORAL SURGERY
  3. SERETIDE [Concomitant]
  4. ALBUTEROL [Concomitant]

REACTIONS (26)
  - WHEEZING [None]
  - MALIGNANT HYPERTENSION [None]
  - CHEST DISCOMFORT [None]
  - PRURITUS GENERALISED [None]
  - CHRONIC OBSTRUCTIVE PULMONARY DISEASE [None]
  - VOMITING [None]
  - RHINORRHOEA [None]
  - PYREXIA [None]
  - CHILLS [None]
  - DIZZINESS [None]
  - SYNCOPE [None]
  - ASTHENIA [None]
  - SKELETAL INJURY [None]
  - PLEURISY [None]
  - PRODUCTIVE COUGH [None]
  - CONTUSION [None]
  - DYSPNOEA [None]
  - ABDOMINAL PAIN [None]
  - GAIT DISTURBANCE [None]
  - NAUSEA [None]
  - FALL [None]
  - BRONCHITIS [None]
  - MALAISE [None]
  - CHEST PAIN [None]
  - HEADACHE [None]
  - RHONCHI [None]
